FAERS Safety Report 5033665-4 (Version None)
Quarter: 2006Q2

REPORT INFORMATION
  Report Type: 
  Country: None (occurrence: None)
  Receive Date: 20060623
  Receipt Date: 20060613
  Transmission Date: 20061013
  Serious: Yes (Congenital Anomaly)
  Sender: FDA-Public Use
  Company Number: US-GLAXOSMITHKLINE-A0610056A

PATIENT
  Weight: 4.5 kg

DRUGS (8)
  1. FLUTICASONE PROPIONATE + SALMETEROL XINAFOATE [Suspect]
     Indication: MATERNAL CONDITION AFFECTING FOETUS
  2. ALBUTEROL SPIROS [Suspect]
     Indication: MATERNAL CONDITION AFFECTING FOETUS
  3. SINGULAIR [Concomitant]
  4. THEOPHYLLINE [Concomitant]
  5. ORTHO TRI-CYCLEN [Concomitant]
  6. TELITHROMYCIN [Concomitant]
  7. PREDNISONE [Concomitant]
  8. CELEXA [Concomitant]

REACTIONS (2)
  - DRUG EXPOSURE DURING PREGNANCY [None]
  - LIMB MALFORMATION [None]
